FAERS Safety Report 13754159 (Version 4)
Quarter: 2017Q3

REPORT INFORMATION
  Report Type: Spontaneous
  Country: NO (occurrence: NO)
  Receive Date: 20170714
  Receipt Date: 20170919
  Transmission Date: 20171127
  Serious: Yes (Other)
  Sender: FDA-Public Use
  Company Number: NO-PFIZER INC-2017306196

PATIENT
  Age: 68 Year
  Sex: Female

DRUGS (2)
  1. GLIVEC [Interacting]
     Active Substance: IMATINIB MESYLATE
     Indication: GASTROINTESTINAL STROMAL TUMOUR
     Dosage: 400 MG, DAILY (QD)
     Route: 048
     Dates: start: 201512, end: 20170302
  2. SOMAC [Suspect]
     Active Substance: PANTOPRAZOLE SODIUM
     Indication: PROPHYLAXIS AGAINST GASTROINTESTINAL ULCER
     Dosage: 40 MG, DAILY (QD)
     Route: 048
     Dates: start: 20170116, end: 20170302

REACTIONS (4)
  - Drug interaction [Unknown]
  - Thrombocytopenia [Recovered/Resolved]
  - Eyelid bleeding [Recovered/Resolved]
  - Conjunctival haemorrhage [Recovered/Resolved]

NARRATIVE: CASE EVENT DATE: 201702
